FAERS Safety Report 7104396-1 (Version None)
Quarter: 2010Q4

REPORT INFORMATION
  Report Type: 
  Country: None (occurrence: None)
  Receive Date: 20101115
  Receipt Date: 20101109
  Transmission Date: 20110411
  Serious: Yes (Hospitalization, Other)
  Sender: FDA-Public Use
  Company Number: US-AMGEN-QUU398037

PATIENT

DRUGS (13)
  1. NPLATE [Suspect]
     Indication: IDIOPATHIC THROMBOCYTOPENIC PURPURA
     Dosage: 180 A?G, UNK
     Dates: start: 20081128, end: 20091223
  2. FERROUS SULFATE [Concomitant]
     Dosage: 325 MG, BID
     Route: 048
  3. RITUXIMAB [Concomitant]
  4. CORTICOSTEROID NOS [Concomitant]
  5. DANAZOL [Concomitant]
     Dosage: 200 MG, QD
     Dates: start: 20080101
  6. IMMU-G [Concomitant]
     Dosage: UNK UNK, UNK
     Route: 042
  7. ZOLPIDEM TARTRATE [Concomitant]
     Dosage: 10 MG, PRN
     Route: 048
  8. LORAZEPAM [Concomitant]
     Dosage: .5 MG, PRN
     Route: 048
  9. LISINOPRIL [Concomitant]
     Dosage: 10 MG, QD
     Route: 048
  10. OMEPRAZOLE [Concomitant]
     Dosage: 40 MG, BID
     Route: 048
  11. NIFEDIPINE [Concomitant]
     Dosage: 30 MG, QD
  12. TOPIRAMATE [Concomitant]
     Dosage: 50 MG, BID
     Route: 048
  13. ZOLPIDEM [Concomitant]
     Dosage: 10 MG, PRN
     Route: 048

REACTIONS (11)
  - CELLULITIS [None]
  - DEHYDRATION [None]
  - DRUG INEFFECTIVE [None]
  - INSOMNIA [None]
  - IRON DEFICIENCY ANAEMIA [None]
  - NAUSEA [None]
  - PAIN [None]
  - PARONYCHIA [None]
  - PLATELET COUNT DECREASED [None]
  - SPLENECTOMY [None]
  - VAGINAL HAEMORRHAGE [None]
